FAERS Safety Report 24456847 (Version 1)
Quarter: 2024Q4

REPORT INFORMATION
  Report Type: Spontaneous
  Country: US (occurrence: None)
  Receive Date: 20241018
  Receipt Date: 20241018
  Transmission Date: 20250114
  Serious: No
  Sender: ADAMAS PHARMA
  Company Number: US-ARIS GLOBAL-ADM202309-003626

PATIENT
  Age: 67 Year
  Sex: Female

DRUGS (4)
  1. GOCOVRI [Suspect]
     Active Substance: AMANTADINE
     Indication: Parkinson^s disease
     Route: 048
     Dates: end: 20230909
  2. MIRAPEX [Concomitant]
     Active Substance: PRAMIPEXOLE DIHYDROCHLORIDE
     Dosage: NOT PROVIDED
  3. CLONAZEPAM [Concomitant]
     Active Substance: CLONAZEPAM
     Dosage: NOT PROVIDED
  4. SINEMET [Concomitant]
     Active Substance: CARBIDOPA\LEVODOPA
     Dosage: EACH DF CONTAINS 25-100MG

REACTIONS (1)
  - Drug ineffective [Unknown]
